FAERS Safety Report 21776147 (Version 1)
Quarter: 2022Q4

REPORT INFORMATION
  Report Type: Spontaneous
  Country: US (occurrence: US)
  Receive Date: 20221226
  Receipt Date: 20221226
  Transmission Date: 20230113
  Serious: No
  Sender: FDA-Public Use
  Company Number: US-Accord-281474

PATIENT
  Sex: Female

DRUGS (1)
  1. BUPROPION HYDROCHLORIDE [Suspect]
     Active Substance: BUPROPION HYDROCHLORIDE
     Indication: Anxiety disorder
     Dosage: 300MG 1 X DAILY?BUPROPION HYDROCHLORIDE EXTENDED RELEASE TABLETS

REACTIONS (1)
  - Product odour abnormal [Unknown]
